FAERS Safety Report 15753914 (Version 1)
Quarter: 2018Q4

REPORT INFORMATION
  Report Type: Spontaneous
  Country: US (occurrence: US)
  Receive Date: 20181222
  Receipt Date: 20181222
  Transmission Date: 20190205
  Serious: No
  Sender: FDA-Public Use
  Company Number: PHEH2018US054152

PATIENT
  Sex: Female

DRUGS (4)
  1. TAFINLAR [Suspect]
     Active Substance: DABRAFENIB MESYLATE
     Indication: METASTASES TO SKIN
  2. MEKINIST [Suspect]
     Active Substance: TRAMETINIB DIMETHYL SULFOXIDE
     Indication: NEOPLASM MALIGNANT
     Dosage: 2 MG, QD
     Route: 048
     Dates: start: 201811
  3. MEKINIST [Suspect]
     Active Substance: TRAMETINIB DIMETHYL SULFOXIDE
     Indication: METASTASES TO SKIN
  4. TAFINLAR [Suspect]
     Active Substance: DABRAFENIB MESYLATE
     Indication: NEOPLASM MALIGNANT
     Dosage: 150 MG, BID
     Route: 048
     Dates: start: 201811

REACTIONS (4)
  - Fatigue [Unknown]
  - Chills [Unknown]
  - Myalgia [Unknown]
  - Visual impairment [Unknown]
